FAERS Safety Report 9693855 (Version 1)
Quarter: 2013Q4

REPORT INFORMATION
  Report Type: Spontaneous
  Country: JP (occurrence: None)
  Receive Date: 20131114
  Receipt Date: 20131114
  Transmission Date: 20140711
  Serious: Yes (Hospitalization)
  Sender: FDA-Public Use
  Company Number: 2013-003440

PATIENT
  Age: 74 Year
  Sex: Female

DRUGS (1)
  1. ACTONEL [Suspect]
     Indication: SPINAL COMPRESSION FRACTURE
     Dosage: UNKNOWN, ORAL
     Route: 048

REACTIONS (3)
  - Low turnover osteopathy [None]
  - Atypical femur fracture [None]
  - Fall [None]
